FAERS Safety Report 4676754-6 (Version None)
Quarter: 2005Q2

REPORT INFORMATION
  Report Type: 
  Country: None (occurrence: None)
  Receive Date: 20050527
  Receipt Date: 20050329
  Transmission Date: 20051028
  Serious: Yes (Hospitalization, Disabling)
  Sender: FDA-Public Use
  Company Number: US-MERCK-0503USA05124

PATIENT
  Age: 60 Year
  Sex: Male

DRUGS (21)
  1. ZOCOR [Suspect]
     Indication: HYPERCHOLESTEROLAEMIA
     Route: 048
     Dates: start: 20050101, end: 20050401
  2. ZOCOR [Suspect]
     Route: 048
     Dates: start: 19970101, end: 20050101
  3. ZOCOR [Suspect]
     Indication: DYSLIPIDAEMIA
     Route: 048
     Dates: start: 20050101, end: 20050401
  4. ZOCOR [Suspect]
     Route: 048
     Dates: start: 19970101, end: 20050101
  5. GLUCOVANCE [Concomitant]
     Route: 065
  6. ACTOS [Concomitant]
     Route: 065
  7. SYNTHROID [Concomitant]
     Indication: PRIMARY HYPOTHYROIDISM
     Route: 065
  8. ZOLOFT [Concomitant]
     Indication: DEPRESSION
     Route: 065
  9. ZOLOFT [Concomitant]
     Indication: ANXIETY
     Route: 065
  10. ALLOPURINOL [Concomitant]
     Indication: GOUTY ARTHRITIS
     Route: 065
     Dates: start: 20041001
  11. ASPIRIN [Concomitant]
     Route: 065
     Dates: start: 20020901
  12. LANTUS [Concomitant]
     Route: 058
     Dates: start: 20000101
  13. SERAX [Concomitant]
     Indication: DEPRESSION
     Route: 065
  14. SERAX [Concomitant]
     Indication: ANXIETY
     Route: 065
  15. COLCHICINE [Concomitant]
     Indication: GOUTY ARTHRITIS
     Route: 065
  16. COLCHICINE [Concomitant]
     Route: 065
  17. PROVIGIL [Concomitant]
     Route: 065
  18. AVAPRO [Concomitant]
     Route: 065
  19. GLUCOSAMINE [Concomitant]
     Route: 065
  20. INFLUENZA VIRUS VACCINE (UNSPECIFIED) [Concomitant]
     Route: 065
     Dates: start: 20041101, end: 20041101
  21. PNEUMOVAX (PNEUMOCOCCAL 14V POLYSACCHARIDE VACCINE) [Concomitant]
     Route: 065
     Dates: start: 20021210, end: 20021210

REACTIONS (8)
  - ASTHENIA [None]
  - CHEST PAIN [None]
  - HAEMORRHOIDS [None]
  - HEPATIC ENZYME INCREASED [None]
  - INTERVERTEBRAL DISC PROTRUSION [None]
  - MYALGIA [None]
  - PAIN IN EXTREMITY [None]
  - SCIATICA [None]
